FAERS Safety Report 10347272 (Version 8)
Quarter: 2015Q3

REPORT INFORMATION
  Report Type: Report from Study
  Country: US (occurrence: US)
  Receive Date: 20140729
  Receipt Date: 20150922
  Transmission Date: 20151125
  Serious: Yes (Death, Hospitalization, Other)
  Sender: FDA-Public Use
  Company Number: US-ALEXION-A201402846

PATIENT

DRUGS (6)
  1. SOLIRIS [Suspect]
     Active Substance: ECULIZUMAB
     Indication: OFF LABEL USE
  2. COUMADIN [Concomitant]
     Active Substance: WARFARIN SODIUM
     Indication: ANTICOAGULANT THERAPY
     Dosage: UNK, QD
     Route: 065
     Dates: start: 20121001
  3. PROCRIT [Concomitant]
     Active Substance: ERYTHROPOIETIN
     Indication: PRODUCT USED FOR UNKNOWN INDICATION
     Dosage: FOR 3 TO 4 YEARS
     Route: 065
  4. CHEMOTHERAPEUTICS [Concomitant]
     Active Substance: UNSPECIFIED INGREDIENT
     Indication: PRODUCT USED FOR UNKNOWN INDICATION
     Route: 065
  5. SOLIRIS [Suspect]
     Active Substance: ECULIZUMAB
     Indication: PAROXYSMAL NOCTURNAL HAEMOGLOBINURIA
     Dosage: 900 MG, Q2W
     Route: 042
     Dates: start: 20130108
  6. SOLIRIS [Suspect]
     Active Substance: ECULIZUMAB
     Indication: MYELODYSPLASTIC SYNDROME

REACTIONS (22)
  - Pulmonary oedema [Not Recovered/Not Resolved]
  - Peripheral swelling [Unknown]
  - Dyspnoea [Not Recovered/Not Resolved]
  - Platelet count abnormal [Unknown]
  - Erythema [Not Recovered/Not Resolved]
  - Skin disorder [Not Recovered/Not Resolved]
  - White blood cell count increased [Unknown]
  - Blister [Unknown]
  - Acne [Unknown]
  - Off label use [Unknown]
  - Pneumonia [Recovering/Resolving]
  - Cardiac disorder [Not Recovered/Not Resolved]
  - Gene mutation [Unknown]
  - Death [Fatal]
  - Abdominal pain upper [Unknown]
  - Cardiac disorder [Not Recovered/Not Resolved]
  - Dizziness [Unknown]
  - Skin lesion [Unknown]
  - Oedema peripheral [Not Recovered/Not Resolved]
  - Headache [Unknown]
  - Platelet count decreased [Recovering/Resolving]
  - Swelling [Unknown]

NARRATIVE: CASE EVENT DATE: 20130108
